FAERS Safety Report 9399328 (Version 1)
Quarter: 2013Q3

REPORT INFORMATION
  Report Type: Spontaneous
  Country: GB (occurrence: None)
  Receive Date: 20130710
  Receipt Date: 20130710
  Transmission Date: 20140515
  Serious: Yes (Other)
  Sender: FDA-Public Use
  Company Number: SYM-2013-05315

PATIENT
  Age: 54 Year
  Sex: Female

DRUGS (2)
  1. METRONIDAZOLE [Suspect]
     Indication: TOOTH EXTRACTION
     Route: 048
     Dates: start: 20130610, end: 20130611
  2. NAPROXEN (NAPROXEN) (NAPPROXEN) [Concomitant]

REACTIONS (1)
  - Somnolence [None]
